FAERS Safety Report 4749821-6 (Version None)
Quarter: 2005Q3

REPORT INFORMATION
  Report Type: 
  Country: None (occurrence: None)
  Receive Date: 20050822
  Receipt Date: 20050822
  Transmission Date: 20060218
  Serious: Yes (Other)
  Sender: FDA-Public Use
  Company Number: None

PATIENT
  Sex: Female
  Weight: 73.4827 kg

DRUGS (1)
  1. FENTANYL [Suspect]
     Indication: NEUROMYOPATHY
     Dosage: ONE - TWO PATCHES Q 72 HOURS

REACTIONS (3)
  - APPLICATION SITE REACTION [None]
  - APPLICATION SITE SCAR [None]
  - APPLICATION SITE VESICLES [None]
